FAERS Safety Report 4628171-2 (Version None)
Quarter: 2005Q2

REPORT INFORMATION
  Report Type: 
  Country: None (occurrence: None)
  Receive Date: 20050401
  Receipt Date: 20040106
  Transmission Date: 20051028
  Serious: Yes (Hospitalization)
  Sender: FDA-Public Use
  Company Number: 7149

PATIENT
  Age: 70 Year
  Sex: Male

DRUGS (4)
  1. LEUCOVORIN CALCIUM [Suspect]
     Indication: COLORECTAL CANCER
     Dosage: 500 MG/M2 WEEKLY IV
     Route: 042
     Dates: start: 20031007
  2. FLUOROURACIL [Suspect]
     Indication: COLORECTAL CANCER
     Dosage: 1200 MG/M2 WEEKLY IV
     Route: 042
     Dates: start: 20031007
  3. IRINOTECAN HCL [Suspect]
     Indication: COLORECTAL CANCER
     Dosage: 64 MG/M2 IV
     Route: 042
     Dates: start: 20031007
  4. CETUXIMAB [Concomitant]

REACTIONS (1)
  - DIARRHOEA [None]
